FAERS Safety Report 6028824-8 (Version None)
Quarter: 2009Q1

REPORT INFORMATION
  Report Type: 
  Country: None (occurrence: None)
  Receive Date: 20090106
  Receipt Date: 20081223
  Transmission Date: 20090719
  Serious: Yes (Other)
  Sender: FDA-Public Use
  Company Number: ZA-PFIZER INC-2008154396

PATIENT

DRUGS (1)
  1. ASPAVOR [Suspect]
     Dosage: UNKN UNKN UNKN TDD:UNKN
     Route: 048

REACTIONS (1)
  - RENAL FAILURE [None]
